FAERS Safety Report 24103957 (Version 2)
Quarter: 2024Q3

REPORT INFORMATION
  Report Type: Spontaneous
  Country: KR (occurrence: KR)
  Receive Date: 20240717
  Receipt Date: 20240717
  Transmission Date: 20241016
  Serious: Yes (Other)
  Sender: STRIDES
  Company Number: KR-STRIDES ARCOLAB LIMITED-2024SP008687

PATIENT
  Age: 79 Year
  Sex: Male

DRUGS (4)
  1. ETOPOSIDE [Suspect]
     Active Substance: ETOPOSIDE
     Indication: Small cell lung cancer metastatic
     Dosage: UNK, CYCLICAL (OVER 10 WEEKS)
     Route: 065
  2. ATEZOLIZUMAB [Suspect]
     Active Substance: ATEZOLIZUMAB
     Indication: Small cell lung cancer metastatic
     Dosage: UNK, CYCLICAL (OVER 10 WEEKS)
     Route: 065
  3. CARBOPLATIN [Suspect]
     Active Substance: CARBOPLATIN
     Indication: Small cell lung cancer metastatic
     Dosage: 200 MILLIGRAM/SQ. METER, CYCLICAL (OVER 10 WEEKS)
     Route: 065
  4. CARBOPLATIN [Suspect]
     Active Substance: CARBOPLATIN
     Dosage: 710 MILLIGRAM, CYCLICAL (TOTAL DOSE OF 710MG OVER THE TWO CYCLES)
     Route: 065

REACTIONS (1)
  - Optic ischaemic neuropathy [Not Recovered/Not Resolved]
